FAERS Safety Report 9793339 (Version 2)
Quarter: 2014Q1

REPORT INFORMATION
  Report Type: Spontaneous
  Country: US (occurrence: US)
  Receive Date: 20140102
  Receipt Date: 20140117
  Transmission Date: 20141002
  Serious: Yes (Congenital Anomaly, Other)
  Sender: FDA-Public Use
  Company Number: US-PFIZER INC-2013374636

PATIENT
  Sex: Female

DRUGS (6)
  1. ZOLOFT [Suspect]
     Indication: DEPRESSION
     Dosage: UNK
     Route: 064
     Dates: start: 2011, end: 2011
  2. SERTRALINE HCL [Suspect]
     Indication: DEPRESSION
     Dosage: UNK
     Route: 064
  3. INSULIN [Concomitant]
     Dosage: UNK
     Route: 064
  4. METFORMIN [Concomitant]
     Dosage: UNK
     Route: 064
  5. ACTOS [Concomitant]
     Dosage: UNK
     Route: 064
  6. SEROQUEL [Concomitant]
     Dosage: UNK
     Route: 064

REACTIONS (3)
  - Maternal exposure during pregnancy [Unknown]
  - Congenital spinal cord anomaly [Unknown]
  - Premature baby [Unknown]
